FAERS Safety Report 9654727 (Version 2)
Quarter: 2013Q4

REPORT INFORMATION
  Report Type: Spontaneous
  Country: US (occurrence: US)
  Receive Date: 20131029
  Receipt Date: 20131029
  Transmission Date: 20140711
  Serious: Yes (Death)
  Sender: FDA-Public Use
  Company Number: US-NAPPMUNDI-USA-2009-0037776

PATIENT
  Age: 33 Year
  Sex: Male
  Weight: 120.18 kg

DRUGS (4)
  1. OXYCODONE HYDROCHLORIDE (SIMILAR TO NDA 20-553) [Suspect]
     Indication: DRUG ABUSE
  2. OXYMORPHONE [Suspect]
     Indication: DRUG ABUSE
  3. CARISOPRODOL [Suspect]
     Indication: DRUG ABUSE
  4. MEPROBAMATE [Suspect]
     Indication: DRUG ABUSE

REACTIONS (2)
  - Accidental overdose [Fatal]
  - Drug abuse [Fatal]
